FAERS Safety Report 7135752-3 (Version None)
Quarter: 2010Q4

REPORT INFORMATION
  Report Type: 
  Country: None (occurrence: None)
  Receive Date: 20101203
  Receipt Date: 20101124
  Transmission Date: 20110411
  Serious: Yes (Other)
  Sender: FDA-Public Use
  Company Number: US-PFIZER INC-2010157409

PATIENT
  Sex: Female
  Weight: 68.027 kg

DRUGS (2)
  1. CELEBREX [Suspect]
     Indication: BACK PAIN
     Dosage: UNK
     Route: 048
  2. CELEBREX [Suspect]
     Indication: SCOLIOSIS

REACTIONS (2)
  - HYPERTENSION [None]
  - MITRAL VALVE PROLAPSE [None]
